FAERS Safety Report 5614075-5 (Version None)
Quarter: 2008Q1

REPORT INFORMATION
  Report Type: 
  Country: None (occurrence: None)
  Receive Date: 20080130
  Receipt Date: 20070220
  Transmission Date: 20080703
  Serious: Yes (Hospitalization)
  Sender: FDA-Public Use
  Company Number: NL01PV07.02328

PATIENT
  Sex: Male

DRUGS (6)
  1. PAROXETINE [Suspect]
     Indication: BIPOLAR DISORDER
     Dosage: 20 MG, QD; 40 MG MG, QD; 30 MG, QD
     Dates: start: 20000901, end: 20001001
  2. PAROXETINE [Suspect]
     Indication: BIPOLAR DISORDER
     Dosage: 20 MG, QD; 40 MG MG, QD; 30 MG, QD
     Dates: start: 19990101
  3. LITHIUM CARBONATE [Suspect]
     Dosage: 1000 MG, QD; 400 MG, QD
     Dates: start: 20000701, end: 20000901
  4. LITHIUM CARBONATE [Suspect]
     Dosage: 1000 MG, QD; 400 MG, QD
     Dates: start: 19990101
  5. LORATADINE [Concomitant]
  6. RISPERIDONE [Concomitant]

REACTIONS (7)
  - CONDITION AGGRAVATED [None]
  - DEPRESSION [None]
  - DRUG WITHDRAWAL SYNDROME [None]
  - ELEVATED MOOD [None]
  - HYPOMANIA [None]
  - OBSESSIVE THOUGHTS [None]
  - SUICIDAL IDEATION [None]
